FAERS Safety Report 4946177-0 (Version None)
Quarter: 2006Q1

REPORT INFORMATION
  Report Type: 
  Country: None (occurrence: None)
  Receive Date: 20060118
  Receipt Date: 20050407
  Transmission Date: 20060701
  Serious: Yes (Other)
  Sender: FDA-Public Use
  Company Number: US-JNJFOC-20050304538

PATIENT
  Age: 52 Year
  Sex: Female
  Weight: 71.2147 kg

DRUGS (4)
  1. DOXIL [Suspect]
     Indication: OVARIAN CANCER
     Dosage: X2 CYCLES
     Dates: start: 20041101
  2. DOXIL [Suspect]
     Dosage: 70 MG, 1 IN 4 WEEK, INTRAVENOUS
     Route: 042
     Dates: start: 20050101
  3. KYTRIL [Concomitant]
  4. DEXAMETHASONE [Concomitant]

REACTIONS (1)
  - PALMAR-PLANTAR ERYTHRODYSAESTHESIA SYNDROME [None]
